FAERS Safety Report 9015167 (Version 1)
Quarter: 2013Q1

REPORT INFORMATION
  Report Type: Spontaneous
  Country: US (occurrence: None)
  Receive Date: 20130109
  Receipt Date: 20130109
  Transmission Date: 20140127
  Serious: No
  Sender: FDA-Public Use
  Company Number: None

PATIENT
  Age: 44 Year
  Sex: Female
  Weight: 50.8 kg

DRUGS (7)
  1. CYMBALTA [Suspect]
     Indication: PAIN
     Route: 048
  2. CYMBALTA [Suspect]
     Indication: ANXIETY
     Route: 048
  3. CYMBALTA [Suspect]
     Indication: PAIN
     Route: 048
  4. CYMBALTA [Suspect]
     Indication: ANXIETY
     Route: 048
  5. NORVASC [Concomitant]
  6. IBUPROFEN [Concomitant]
  7. VITAMIN D [Concomitant]

REACTIONS (6)
  - Fatigue [None]
  - Feeling abnormal [None]
  - Activities of daily living impaired [None]
  - Decreased appetite [None]
  - Nausea [None]
  - Constipation [None]
